FAERS Safety Report 15142831 (Version 3)
Quarter: 2018Q3

REPORT INFORMATION
  Report Type: Report from Study
  Country: DE (occurrence: DE)
  Receive Date: 20180713
  Receipt Date: 20180808
  Transmission Date: 20181010
  Serious: Yes (Hospitalization)
  Sender: FDA-Public Use
  Company Number: DE-PFIZER INC-2018278924

PATIENT
  Age: 58 Year
  Sex: Female
  Weight: 84 kg

DRUGS (14)
  1. OXALIPLATIN. [Suspect]
     Active Substance: OXALIPLATIN
     Indication: COLORECTAL CANCER METASTATIC
     Dosage: 181 MG, UNK
     Route: 042
     Dates: end: 20160502
  2. 5?FU /00098801/ [Concomitant]
     Active Substance: FLUOROURACIL
     Dosage: 1 DF EVERY 2 WEEKS; DOSE: 725?755 MG
     Route: 040
     Dates: start: 20160404, end: 20160502
  3. 5?FU /00098801/ [Concomitant]
     Active Substance: FLUOROURACIL
     Indication: COLORECTAL CANCER METASTATIC
     Dosage: 4535 MG, EVERY 2 WEEKS
     Route: 041
     Dates: start: 20160404, end: 20160406
  4. 5?FU /00098801/ [Concomitant]
     Active Substance: FLUOROURACIL
     Dosage: 4535 MG,
     Route: 041
     Dates: start: 20160418, end: 20160420
  5. METOPROLOL. [Concomitant]
     Active Substance: METOPROLOL
     Indication: HYPERTENSION
     Dosage: 95 MG, 1X/DAY
     Route: 048
     Dates: start: 2014
  6. VALSARTAN. [Concomitant]
     Active Substance: VALSARTAN
     Indication: HYPERTENSION
     Dosage: 320 MG, 1X/DAY
     Route: 048
     Dates: start: 2014
  7. AVASTIN [Suspect]
     Active Substance: BEVACIZUMAB
     Indication: COLORECTAL CANCER METASTATIC
     Dosage: 380 MG, EVERY 2 WEEKS
     Route: 042
     Dates: start: 20160502, end: 20160502
  8. 5?FU /00098801/ [Concomitant]
     Active Substance: FLUOROURACIL
     Dosage: 755 MG, ALSO RECEIVED ON 18/APR/2016
     Route: 040
     Dates: start: 20160404
  9. TOREM /01036501/ [Concomitant]
     Active Substance: TORSEMIDE
     Indication: HYPERTENSION
     Dosage: 10 MG, 1X/DAY
     Route: 048
     Dates: start: 2014
  10. CALCIUM FOLINATE [Suspect]
     Active Substance: LEUCOVORIN CALCIUM
     Indication: COLORECTAL CANCER METASTATIC
     Dosage: 755 MG, EVERY 2 WEEKS
     Route: 042
     Dates: start: 20160404, end: 20160418
  11. 5?FU /00098801/ [Concomitant]
     Active Substance: FLUOROURACIL
     Dosage: 4345 MG, UNK
     Route: 041
     Dates: start: 20160502, end: 20160504
  12. OXALIPLATIN. [Suspect]
     Active Substance: OXALIPLATIN
     Dosage: 189 MG, EVERY 2 WEEKS
     Route: 042
     Dates: start: 20160404, end: 20160502
  13. CALCIUM FOLINATE [Suspect]
     Active Substance: LEUCOVORIN CALCIUM
     Dosage: 725 MG, EVERY 2 WEEKS
     Route: 042
     Dates: start: 20160502, end: 20160502
  14. FERINJECT [Concomitant]
     Active Substance: FERRIC CARBOXYMALTOSE
     Indication: ANAEMIA
     Dosage: 1000 MG, 1X/DAY
     Route: 042
     Dates: start: 20160406, end: 20160406

REACTIONS (3)
  - Posterior reversible encephalopathy syndrome [Recovered/Resolved]
  - Seizure [Recovered/Resolved]
  - Encephalitis [Recovered/Resolved]

NARRATIVE: CASE EVENT DATE: 20160512
